FAERS Safety Report 16184020 (Version 3)
Quarter: 2019Q2

REPORT INFORMATION
  Report Type: Report from Study
  Country: RO (occurrence: RO)
  Receive Date: 20190411
  Receipt Date: 20190531
  Transmission Date: 20190711
  Serious: Yes (Hospitalization)
  Sender: FDA-Public Use
  Company Number: RO-AMREGENT-20190678

PATIENT
  Age: 59 Year
  Sex: Male
  Weight: 137 kg

DRUGS (9)
  1. FUROSEMIDE. [Concomitant]
     Active Substance: FUROSEMIDE
     Dosage: 60 MG (20 MG, 3 IN 1 D)
     Route: 042
     Dates: start: 20181212, end: 20181214
  2. FERINJECT [Suspect]
     Active Substance: FERRIC CARBOXYMALTOSE
     Dosage: 10 ML
     Route: 040
     Dates: start: 20181221, end: 20181221
  3. ACETYLSALICYLIC ACID [Concomitant]
     Active Substance: ASPIRIN
     Dosage: 100 MG (100 MG, 1 IN 1 D)
     Route: 048
     Dates: start: 20181212
  4. METFORMIN [Concomitant]
     Active Substance: METFORMIN HYDROCHLORIDE
     Dosage: 2000 MG (1000 MG, 2 IN 1 D)
     Route: 048
     Dates: start: 20181212
  5. SPIRONOLACTONA [Concomitant]
     Active Substance: SPIRONOLACTONE
     Dosage: 25 MG (25 MG, 1 IN 1 D)
     Route: 048
     Dates: start: 20181212
  6. GLICLAZIDA [Concomitant]
     Active Substance: GLICLAZIDE
     Dosage: 60 MG (60 MG, 1 IN 1 D)
     Route: 048
     Dates: start: 20181212
  7. IVABRADINA [Concomitant]
     Active Substance: IVABRADINE
     Dosage: 10 MG (5 MG, 2 IN 1 D)
     Route: 048
     Dates: start: 20181212
  8. CARVEDILOL. [Concomitant]
     Active Substance: CARVEDILOL
     Dosage: 6.25 MG (3.125 MG, 2 IN 1 D)
     Route: 048
     Dates: start: 20181212, end: 20190328
  9. ATORVASTATINA [Concomitant]
     Active Substance: ATORVASTATIN
     Dosage: 20 MG (20 MG, 1 IN 1 D)
     Route: 048
     Dates: start: 20181212, end: 20181220

REACTIONS (1)
  - Cardiac failure [Recovering/Resolving]

NARRATIVE: CASE EVENT DATE: 20190328
